FAERS Safety Report 24915946 (Version 1)
Quarter: 2025Q1

REPORT INFORMATION
  Report Type: Spontaneous
  Country: AR (occurrence: AR)
  Receive Date: 20250203
  Receipt Date: 20250203
  Transmission Date: 20250408
  Serious: Yes (Other)
  Sender: PFIZER
  Company Number: AR-PFIZER INC-PV202500012982

PATIENT
  Age: 73 Year
  Sex: Female

DRUGS (4)
  1. BRAFTOVI [Suspect]
     Active Substance: ENCORAFENIB
  2. SERTRALINE [Concomitant]
     Active Substance: SERTRALINE HYDROCHLORIDE
  3. LAMOTRIGINE [Concomitant]
     Active Substance: LAMOTRIGINE
  4. CLONAZEPAM [Concomitant]
     Active Substance: CLONAZEPAM

REACTIONS (6)
  - Colon cancer [Unknown]
  - Herpes zoster [Unknown]
  - Anxiety [Unknown]
  - Mania [Unknown]
  - Neoplasm [Unknown]
  - Headache [Unknown]

NARRATIVE: CASE EVENT DATE: 20240101
